FAERS Safety Report 12870527 (Version 5)
Quarter: 2021Q4

REPORT INFORMATION
  Report Type: Spontaneous
  Country: US (occurrence: US)
  Receive Date: 20161021
  Receipt Date: 20211015
  Transmission Date: 20220303
  Serious: Yes (Death, Hospitalization)
  Sender: FDA-Public Use
  Company Number: US-PFIZER INC-2016480738

PATIENT
  Age: 80 Year
  Sex: Male
  Weight: 71 kg

DRUGS (19)
  1. RAPAMUNE [Suspect]
     Active Substance: SIROLIMUS
     Indication: Liver transplant
     Dosage: 1 MG, ALTERNATE DAY
     Route: 048
  2. RAPAMUNE [Suspect]
     Active Substance: SIROLIMUS
     Dosage: 0.5 MG, ALTERNATE DAY
     Route: 048
  3. RAPAMUNE [Suspect]
     Active Substance: SIROLIMUS
     Dosage: 0.5 MG, DAILY (1 TABLET BY MOUTH)
     Route: 048
  4. CELLCEPT [Concomitant]
     Active Substance: MYCOPHENOLATE MOFETIL\MYCOPHENOLATE MOFETIL HYDROCHLORIDE
     Dosage: 250 MG, 2X/DAY
  5. TOPROL XL [Concomitant]
     Active Substance: METOPROLOL SUCCINATE
     Dosage: 100 MG, 1X/DAY
  6. HYDRALAZINE HYDROCHLORIDE [Concomitant]
     Active Substance: HYDRALAZINE HYDROCHLORIDE
     Dosage: 50 MG, 3X/DAY
  7. LOVASTATIN [Concomitant]
     Active Substance: LOVASTATIN
     Dosage: 20 MG, 1X/DAY (WITH A MEAL)
  8. AMLODIPINE BESYLATE [Concomitant]
     Active Substance: AMLODIPINE BESYLATE
     Dosage: 2.5 MG, 1X/DAY
  9. WARFARIN SODIUM [Concomitant]
     Active Substance: WARFARIN SODIUM
     Dosage: 4 MG, UNK (1 TABLET ALTERNATING WITH 3MG)
  10. WARFARIN SODIUM [Concomitant]
     Active Substance: WARFARIN SODIUM
     Dosage: 3 MG, UNK (1 TABLET ALTERNATING WITH 3MG)
  11. ASPIRIN [Concomitant]
     Active Substance: ASPIRIN
     Dosage: 81 MG, 1X/DAY
  12. SODIUM BICARBONATE [Concomitant]
     Active Substance: SODIUM BICARBONATE
     Dosage: 1300 MG, 2X/DAY
  13. VITAMIN D NOS [Concomitant]
     Active Substance: VITAMIN D NOS
     Dosage: 2000 IU, 1X/DAY
  14. VITAMIN C [Concomitant]
     Active Substance: ASCORBIC ACID
     Dosage: 500 MG, 1X/DAY
  15. OXYBUTYN [Concomitant]
     Dosage: 5 MG, 1X/DAY
  16. MYRBETRIQ [Concomitant]
     Active Substance: MIRABEGRON
     Dosage: 50 MG, 1X/DAY
  17. CYTOMEL [Concomitant]
     Active Substance: LIOTHYRONINE SODIUM
     Dosage: 5 UG, 1X/DAY
  18. MEGACE [Concomitant]
     Active Substance: MEGESTROL ACETATE
     Indication: Liver transplant
     Dosage: 40 MG, AS NEEDED
     Route: 048
  19. PRAVASTATIN [Concomitant]
     Active Substance: PRAVASTATIN
     Dosage: 20 MG, DAILY

REACTIONS (16)
  - Chronic obstructive pulmonary disease [Fatal]
  - Cardiac disorder [Fatal]
  - Cerebrovascular accident [Unknown]
  - Rectal haemorrhage [Unknown]
  - Melaena [Unknown]
  - Haemoglobin decreased [Unknown]
  - Off label use [Unknown]
  - Circumstance or information capable of leading to medication error [Unknown]
  - Constipation [Unknown]
  - Disturbance in attention [Unknown]
  - Hypoaesthesia [Unknown]
  - Burning sensation [Unknown]
  - Hiatus hernia [Unknown]
  - Angiodysplasia [Unknown]
  - Peripheral swelling [Unknown]
  - Dysphagia [Unknown]

NARRATIVE: CASE EVENT DATE: 20150701
